FAERS Safety Report 6102646-1 (Version None)
Quarter: 2009Q1

REPORT INFORMATION
  Report Type: 
  Country: None (occurrence: None)
  Receive Date: 20090304
  Receipt Date: 20081106
  Transmission Date: 20090719
  Serious: No
  Sender: FDA-Public Use
  Company Number: A0755192A

PATIENT
  Age: 73 Year
  Sex: Male

DRUGS (6)
  1. REQUIP [Suspect]
     Indication: RESTLESS LEGS SYNDROME
     Dosage: 1MG PER DAY
     Route: 048
     Dates: start: 20030101
  2. ROPINIROLE [Suspect]
     Indication: RESTLESS LEGS SYNDROME
     Dosage: 2MG TWICE PER DAY
     Route: 048
     Dates: start: 20070101, end: 20070101
  3. LOTREL [Suspect]
     Route: 048
  4. DIOVAN [Concomitant]
  5. LEXAPRO [Concomitant]
  6. VITAMINS [Concomitant]

REACTIONS (4)
  - DRUG INEFFECTIVE [None]
  - LOCAL SWELLING [None]
  - OEDEMA PERIPHERAL [None]
  - THERAPEUTIC RESPONSE DELAYED [None]
